FAERS Safety Report 5739872-7 (Version None)
Quarter: 2008Q2

REPORT INFORMATION
  Report Type: 
  Country: None (occurrence: None)
  Receive Date: 20080516
  Receipt Date: 20080506
  Transmission Date: 20081010
  Serious: Yes (Hospitalization, Other)
  Sender: FDA-Public Use
  Company Number: US-JNJFOC-20080300061

PATIENT
  Sex: Male
  Weight: 111.13 kg

DRUGS (25)
  1. FENTANYL TRANSDERMAL SYSTEM [Suspect]
     Indication: NEUROPATHY PERIPHERAL
     Route: 062
  2. FENTANYL TRANSDERMAL SYSTEM [Suspect]
     Indication: CORONARY ARTERY INSUFFICIENCY
     Route: 062
  3. FLUOXETINE [Concomitant]
     Indication: DEPRESSION
     Route: 048
  4. GEMFIBROZIL [Concomitant]
     Route: 048
  5. FOLIC ACID [Concomitant]
     Indication: DRUG USE FOR UNKNOWN INDICATION
     Route: 048
  6. NITROGLYCERIN [Concomitant]
     Indication: CHEST PAIN
     Route: 060
  7. NIFEDIPINE [Concomitant]
     Indication: HYPERTENSION
     Route: 048
  8. ATENOLOL [Concomitant]
     Indication: HYPERTENSION
     Route: 048
  9. ISOSORBIDE DINITRATE [Concomitant]
     Indication: CHEST PAIN
     Route: 048
  10. LISINOPRIL [Concomitant]
     Indication: HYPERTENSION
     Route: 048
  11. OMEPRAZOLE [Concomitant]
     Route: 048
  12. PLAVIX [Concomitant]
     Route: 048
  13. ASPIRIN [Concomitant]
     Indication: DRUG USE FOR UNKNOWN INDICATION
     Route: 048
  14. TRAZODONE HCL [Concomitant]
     Indication: NEURALGIA
     Dosage: AT NIGHT
     Route: 048
  15. GABAPENTIN [Concomitant]
     Indication: NEURALGIA
     Route: 048
  16. ACTIQ [Concomitant]
     Indication: PAIN
     Dosage: 2-3 DAILY
     Route: 002
  17. ATIVAN [Concomitant]
     Indication: ANXIETY
     Route: 048
  18. GABITRIL [Concomitant]
     Indication: NEURALGIA
     Route: 048
  19. LORATADINE [Concomitant]
     Indication: MULTIPLE ALLERGIES
     Route: 048
  20. ACETAMINOPHEN [Concomitant]
     Indication: BREAKTHROUGH PAIN
     Route: 048
  21. DILAUDID [Concomitant]
     Indication: BREAKTHROUGH PAIN
     Dosage: AS NEEDED
     Route: 048
  22. GLYBURIDE [Concomitant]
     Indication: DIABETES MELLITUS
     Route: 048
  23. METFORMIN HCL [Concomitant]
     Dosage: AT BEDTIME
     Route: 048
  24. METFORMIN HCL [Concomitant]
     Indication: DIABETES MELLITUS
     Route: 048
  25. MAGNESIUM OXIDE [Concomitant]
     Indication: DRUG USE FOR UNKNOWN INDICATION
     Route: 048

REACTIONS (3)
  - BRONCHOSPASM [None]
  - CHEST PAIN [None]
  - WITHDRAWAL SYNDROME [None]
